FAERS Safety Report 19291985 (Version 1)
Quarter: 2021Q2

REPORT INFORMATION
  Report Type: Spontaneous
  Country: CN (occurrence: CN)
  Receive Date: 20210524
  Receipt Date: 20210524
  Transmission Date: 20210717
  Serious: Yes (Other)
  Sender: FDA-Public Use
  Company Number: CN-ROCHE-2833460

PATIENT
  Age: 49 Year
  Sex: Female
  Weight: 65 kg

DRUGS (4)
  1. OXALIPLATIN. [Suspect]
     Active Substance: OXALIPLATIN
     Indication: COLON CANCER
     Route: 041
     Dates: start: 20210421, end: 20210421
  2. SODIUM CHLORIDE. [Concomitant]
     Active Substance: SODIUM CHLORIDE
     Dosage: SOLVENT FOR BEVACIZUMAB
     Route: 041
     Dates: start: 20210421, end: 20210421
  3. AVASTIN [Suspect]
     Active Substance: BEVACIZUMAB
     Indication: COLON CANCER
     Route: 041
     Dates: start: 20210421, end: 20210421
  4. GLUCOSE [Concomitant]
     Active Substance: DEXTROSE
     Dosage: SOLVENT FOR OXALIPLATIN FOR INJECTION
     Route: 041
     Dates: start: 20210421, end: 20210421

REACTIONS (1)
  - Myelosuppression [Recovering/Resolving]

NARRATIVE: CASE EVENT DATE: 20210510
